FAERS Safety Report 9060342 (Version 1)
Quarter: 2013Q1

REPORT INFORMATION
  Report Type: Spontaneous
  Country: DE (occurrence: DE)
  Receive Date: 20130212
  Receipt Date: 20130212
  Transmission Date: 20140127
  Serious: Yes (Other)
  Sender: FDA-Public Use
  Company Number: PHHY2013DE009716

PATIENT
  Age: 75 Year
  Sex: Male

DRUGS (2)
  1. LEUPRORELIN ACETATE [Suspect]
     Indication: PROSTATE CANCER
     Dosage: UNK UKN, UNK
     Dates: start: 2005, end: 2008
  2. BUSERELIN [Suspect]
     Indication: PROSTATE CANCER
     Dosage: UNK UKN, UNK
     Dates: start: 2005, end: 2008

REACTIONS (4)
  - Hepatocellular carcinoma [Recovering/Resolving]
  - Disease progression [Unknown]
  - Abdominal neoplasm [Recovering/Resolving]
  - Skin discolouration [Recovering/Resolving]
